FAERS Safety Report 7439550-2 (Version None)
Quarter: 2011Q2

REPORT INFORMATION
  Report Type: 
  Country: None (occurrence: None)
  Receive Date: 20110427
  Receipt Date: 20110419
  Transmission Date: 20111010
  Serious: Yes (Hospitalization)
  Sender: FDA-Public Use
  Company Number: US-BRISTOL-MYERS SQUIBB COMPANY-15689847

PATIENT
  Age: 68 Year
  Sex: Female
  Weight: 68 kg

DRUGS (5)
  1. LATUDA [Suspect]
     Indication: SCHIZOPHRENIA
     Route: 048
     Dates: start: 20110214
  2. ABILIFY [Suspect]
     Dosage: REDUCED DOSE TO HALF.
     Dates: start: 20030101, end: 20110218
  3. THORAZINE [Concomitant]
  4. SEROQUEL [Suspect]
     Dates: end: 20110217
  5. PROLIXIN [Concomitant]

REACTIONS (4)
  - MUSCULOSKELETAL STIFFNESS [None]
  - SCHIZOPHRENIA [None]
  - FEELING ABNORMAL [None]
  - MYALGIA [None]
